FAERS Safety Report 7668950-0 (Version None)
Quarter: 2011Q3

REPORT INFORMATION
  Report Type: 
  Country: None (occurrence: None)
  Receive Date: 20110808
  Receipt Date: 20110729
  Transmission Date: 20111222
  Serious: Yes (Hospitalization)
  Sender: FDA-Public Use
  Company Number: US-GLAXOSMITHKLINE-A0939797A

PATIENT
  Age: 76 Year
  Sex: Female

DRUGS (2)
  1. PROMACTA [Suspect]
     Indication: IDIOPATHIC THROMBOCYTOPENIC PURPURA
     Dosage: 75MG PER DAY
     Dates: start: 20110415, end: 20110505
  2. WINRHO SD [Concomitant]
     Indication: IDIOPATHIC THROMBOCYTOPENIC PURPURA
     Dates: start: 20110212, end: 20110212

REACTIONS (7)
  - PETECHIAE [None]
  - PURPURA [None]
  - HAEMATURIA [None]
  - PLATELET COUNT DECREASED [None]
  - DRUG INEFFECTIVE [None]
  - HAEMORRHAGE [None]
  - LETHARGY [None]
